FAERS Safety Report 17165548 (Version 1)
Quarter: 2019Q4

REPORT INFORMATION
  Report Type: Report from Study
  Country: FR (occurrence: FR)
  Receive Date: 20191217
  Receipt Date: 20191217
  Transmission Date: 20200122
  Serious: Yes (Life-Threatening)
  Sender: FDA-Public Use
  Company Number: FR-MYLANLABS-2019M1125218

PATIENT

DRUGS (2)
  1. OXALIPLATIN. [Suspect]
     Active Substance: OXALIPLATIN
     Indication: NEOPLASM MALIGNANT
     Route: 065
  2. FLUOROURACIL. [Suspect]
     Active Substance: FLUOROURACIL
     Indication: NEOPLASM MALIGNANT
     Route: 042

REACTIONS (1)
  - Renal failure [Unknown]
